FAERS Safety Report 12437874 (Version 1)
Quarter: 2016Q2

REPORT INFORMATION
  Report Type: Spontaneous
  Country: DE (occurrence: DE)
  Receive Date: 20160606
  Receipt Date: 20160606
  Transmission Date: 20160815
  Serious: Yes (Other)
  Sender: FDA-Public Use
  Company Number: DE-PFIZER INC-2016279377

PATIENT
  Age: 25 Year
  Sex: Male

DRUGS (1)
  1. LYRICA [Suspect]
     Active Substance: PREGABALIN
     Dosage: 75 MG, UNK
     Dates: start: 20160509, end: 20160527

REACTIONS (7)
  - Chills [Unknown]
  - Headache [Unknown]
  - Nausea [Unknown]
  - Blister [Unknown]
  - Rash [Unknown]
  - Pruritus [Unknown]
  - Influenza [Unknown]
